FAERS Safety Report 5047048-4 (Version None)
Quarter: 2006Q3

REPORT INFORMATION
  Report Type: 
  Country: None (occurrence: None)
  Receive Date: 20060703
  Receipt Date: 20060621
  Transmission Date: 20061208
  Serious: Yes (Other)
  Sender: FDA-Public Use
  Company Number: 2006078450

PATIENT
  Sex: Male
  Weight: 92.9874 kg

DRUGS (13)
  1. DILANTIN KAPSEAL [Suspect]
     Indication: GRAND MAL CONVULSION
     Dosage: 500 MG (100 MG, 3 IN 1 D), ORAL
     Route: 048
     Dates: start: 20010201
  2. CYMBALTA [Suspect]
     Indication: DEPRESSION
     Dates: start: 20041201, end: 20050101
  3. PROVIGIL [Suspect]
     Dates: start: 20050101, end: 20050101
  4. AMIODARONE (AMIODARONE) [Suspect]
     Indication: ARRHYTHMIA
  5. ROCEPHIN [Suspect]
     Indication: URINARY TRACT INFECTION
     Dates: start: 20060601
  6. XOPONEX (LEVOSALBUTAMOL) [Concomitant]
  7. LEVOTHYROXINE SODIUM [Concomitant]
  8. LAMICTAL [Concomitant]
  9. BENICAR [Concomitant]
  10. ADVAIR DISKUS 100/50 [Concomitant]
  11. SPIRIVA [Concomitant]
  12. ALBUTEROL [Concomitant]
  13. XOPENEX [Concomitant]

REACTIONS (8)
  - ANTICONVULSANT DRUG LEVEL DECREASED [None]
  - CONDITION AGGRAVATED [None]
  - CONVULSION [None]
  - DEPRESSION [None]
  - DIARRHOEA [None]
  - NAUSEA [None]
  - PROSTATE CANCER [None]
  - URINARY TRACT INFECTION [None]
